FAERS Safety Report 12328955 (Version 1)
Quarter: 2016Q2

REPORT INFORMATION
  Report Type: Spontaneous
  Country: FR (occurrence: FR)
  Receive Date: 20160503
  Receipt Date: 20160503
  Transmission Date: 20160815
  Serious: Yes (Hospitalization)
  Sender: FDA-Public Use
  Company Number: FR-009507513-1605FRA000607

PATIENT
  Age: 58 Year
  Sex: Male

DRUGS (7)
  1. SOLU-MEDROL [Suspect]
     Active Substance: METHYLPREDNISOLONE SODIUM SUCCINATE
     Dosage: 80 MG (80 MG, 1 IN 1 DAY)
     Route: 042
     Dates: start: 20160307, end: 20160309
  2. EMEND [Suspect]
     Active Substance: APREPITANT
     Dosage: 1 DF (1 DF, 1 IN 1 DAY)
     Route: 048
     Dates: start: 20160307, end: 20160309
  3. SOLUPRED [Suspect]
     Active Substance: PREDNISOLONE
     Dosage: 2 DF (2 DF, 1 IN 1 DAY)
     Route: 048
     Dates: start: 20160308, end: 20160309
  4. ZOPHREN (ONDANSETRON) [Suspect]
     Active Substance: ONDANSETRON
     Dosage: 2 DF (1 DF, 2 IN 1 DAY)
     Route: 048
     Dates: start: 20160307, end: 20160311
  5. BENZATHINE PHENOXYMETHYL PENICILLIN [Concomitant]
     Active Substance: PENICILLIN V BENZATHINE
     Dosage: 2 DF (1 DF, 2 IN 1 DAY)
     Route: 048
  6. CISPLATIN. [Suspect]
     Active Substance: CISPLATIN
     Indication: PANCREATIC CARCINOMA METASTATIC
     Dosage: 183 MG (183 MG, 1 IN 1 DAY)
     Route: 042
     Dates: start: 20160307, end: 20160309
  7. ETOPOSIDE. [Suspect]
     Active Substance: ETOPOSIDE
     Indication: PANCREATIC CARCINOMA METASTATIC
     Dosage: 183 MG (183 MG, 1 IN 1 DAY)
     Route: 042
     Dates: start: 20160307, end: 20160309

REACTIONS (1)
  - Erosive duodenitis [Recovered/Resolved]
